FAERS Safety Report 11074149 (Version 1)
Quarter: 2015Q2

REPORT INFORMATION
  Report Type: Spontaneous
  Country: CH (occurrence: CH)
  Receive Date: 20150429
  Receipt Date: 20150429
  Transmission Date: 20150821
  Serious: Yes (Hospitalization)
  Sender: FDA-Public Use
  Company Number: CH-ASTRAZENECA-2015SE37480

PATIENT
  Age: 57 Year
  Sex: Male

DRUGS (12)
  1. SEROQUEL XR [Suspect]
     Active Substance: QUETIAPINE FUMARATE
     Indication: MANIA
     Route: 048
     Dates: start: 20140909
  2. SIMVASTATIN. [Concomitant]
     Active Substance: SIMVASTATIN
     Route: 048
  3. PHENYDAN [Concomitant]
     Active Substance: PHENYTOIN
  4. ASPIRIN CARDIO [Concomitant]
     Active Substance: ASPIRIN
     Route: 048
  5. ENATEC [Concomitant]
     Active Substance: ENALAPRIL MALEATE
     Route: 048
  6. BECOZYME FORTE [Concomitant]
  7. SEROQUEL XR [Suspect]
     Active Substance: QUETIAPINE FUMARATE
     Indication: MANIA
     Dosage: 25 MG THREE TIMES A DAY IN RESERVE
     Route: 048
     Dates: start: 20141005
  8. METFIN [Concomitant]
     Active Substance: METFORMIN HYDROCHLORIDE
     Route: 048
  9. SIMVASTATIN. [Concomitant]
     Active Substance: SIMVASTATIN
     Route: 048
  10. TEMESTA [Suspect]
     Active Substance: LORAZEPAM
     Indication: MANIA
     Dosage: AT DOSES VARYING BETWEEN 2.5 AND 7.5 MG/DAY
     Route: 048
  11. TEMESTA [Suspect]
     Active Substance: LORAZEPAM
     Indication: MANIA
     Dosage: 3.5 MG/DAY + 4X1 MG/DAY IN RESERVE
     Route: 048
     Dates: start: 20141005
  12. SEROQUEL XR [Suspect]
     Active Substance: QUETIAPINE FUMARATE
     Indication: MANIA
     Dosage: PROGRESSIVE INCREASE IN DOSE UP TO 800 MG/DAY
     Route: 048
     Dates: start: 20140827

REACTIONS (2)
  - Drug withdrawal convulsions [Recovered/Resolved]
  - Generalised tonic-clonic seizure [Recovered/Resolved]

NARRATIVE: CASE EVENT DATE: 20141005
